FAERS Safety Report 21778023 (Version 1)
Quarter: 2022Q4

REPORT INFORMATION
  Report Type: Spontaneous
  Country: US (occurrence: US)
  Receive Date: 20221226
  Receipt Date: 20221226
  Transmission Date: 20230113
  Serious: Yes (Other)
  Sender: FDA-Public Use
  Company Number: US-VIIV HEALTHCARE LIMITED-US2022192042

PATIENT

DRUGS (3)
  1. CABENUVA [Suspect]
     Active Substance: CABOTEGRAVIR\RILPIVIRINE
     Indication: HIV infection
     Dosage: UNK UNK, Z: 2 MONTH RECOMMENDED DOSING SCHEDULE, FIRST DOSE
     Dates: start: 202209
  2. CABENUVA [Suspect]
     Active Substance: CABOTEGRAVIR\RILPIVIRINE
     Dosage: UNK UNK, Z: 2 MONTH RECOMMENDED DOSING SCHEDULE, 2 ND DOSE
     Dates: start: 202210
  3. CABENUVA [Suspect]
     Active Substance: CABOTEGRAVIR\RILPIVIRINE
     Dosage: UNK UNK, Z: 2 MONTH RECOMMENDED DOSING SCHEDULE, 3 RD DOSE
     Dates: start: 202212, end: 20221221

REACTIONS (1)
  - Viral load increased [Recovering/Resolving]
